FAERS Safety Report 8267251-X (Version None)
Quarter: 2012Q2

REPORT INFORMATION
  Report Type: 
  Country: None (occurrence: None)
  Receive Date: 20120409
  Receipt Date: 20120329
  Transmission Date: 20120825
  Serious: Yes (Hospitalization, Other)
  Sender: FDA-Public Use
  Company Number: US-BAYER-2012-018553

PATIENT
  Age: 34 Year
  Sex: Female

DRUGS (7)
  1. MULTI-VITAMIN [Concomitant]
     Dosage: UNK UNK, ONCE
  2. CALCIUM CARBONATE [Concomitant]
     Dosage: 4 G, ONCE
  3. YASMIN [Suspect]
     Dosage: UNK
     Route: 048
     Dates: start: 20050101, end: 20080101
  4. TRICOR [Concomitant]
     Dosage: 145 MG, HS
  5. DROSPIRENONE AND ETHINYL ESTRADIOL [Suspect]
     Indication: DYSMENORRHOEA
     Dosage: UNK
     Route: 048
     Dates: start: 20080101, end: 20100401
  6. SYNTHROID [Concomitant]
     Dosage: 200 MCG/24HR, ONCE
  7. FOLATE SODIUM [Concomitant]
     Dosage: 400 MG, ONCE

REACTIONS (4)
  - VENA CAVA THROMBOSIS [None]
  - PELVIC VENOUS THROMBOSIS [None]
  - DEEP VEIN THROMBOSIS [None]
  - THROMBOSIS [None]
